FAERS Safety Report 12463895 (Version 4)
Quarter: 2016Q2

REPORT INFORMATION
  Report Type: Spontaneous
  Country: JP (occurrence: JP)
  Receive Date: 20160614
  Receipt Date: 20160628
  Transmission Date: 20160815
  Serious: Yes (Hospitalization, Other)
  Sender: FDA-Public Use
  Company Number: PHJP2016JP015553

PATIENT
  Age: 62 Year
  Sex: Male

DRUGS (6)
  1. PREDNISOLONE. [Suspect]
     Active Substance: PREDNISOLONE
     Indication: LUNG TRANSPLANT
     Dosage: 10 MG, QOD
     Route: 065
     Dates: start: 200812
  2. CICLOSPORIN [Suspect]
     Active Substance: CYCLOSPORINE
     Indication: LUNG TRANSPLANT
     Dosage: UNK
     Route: 048
     Dates: start: 200812
  3. CICLOSPORIN [Suspect]
     Active Substance: CYCLOSPORINE
     Indication: IMMUNOSUPPRESSANT DRUG THERAPY
  4. MYCOPHENOLATE MOFETIL. [Suspect]
     Active Substance: MYCOPHENOLATE MOFETIL
     Indication: IMMUNOSUPPRESSANT DRUG THERAPY
     Dosage: 1500 MG, QD
     Route: 065
  5. PREDNISOLONE. [Suspect]
     Active Substance: PREDNISOLONE
     Indication: IMMUNOSUPPRESSANT DRUG THERAPY
  6. MYCOPHENOLATE MOFETIL. [Suspect]
     Active Substance: MYCOPHENOLATE MOFETIL
     Indication: LUNG TRANSPLANT
     Dosage: 2250 MG, QD
     Route: 065
     Dates: start: 200812

REACTIONS (9)
  - Rash [Recovering/Resolving]
  - Abdominal pain upper [Unknown]
  - Product use issue [Unknown]
  - Rash erythematous [Recovering/Resolving]
  - Varicella zoster pneumonia [Recovering/Resolving]
  - Rash vesicular [Recovering/Resolving]
  - Oesophageal ulcer [Unknown]
  - Varicella zoster virus infection [Recovering/Resolving]
  - Respiratory symptom [Recovered/Resolved]
